FAERS Safety Report 5627715-1 (Version None)
Quarter: 2008Q1

REPORT INFORMATION
  Report Type: 
  Country: None (occurrence: None)
  Receive Date: 20080215
  Receipt Date: 20080214
  Transmission Date: 20080703
  Serious: Yes (Other)
  Sender: FDA-Public Use
  Company Number: GB-BAYER-200711211BNE

PATIENT
  Age: 45 Year
  Sex: Male

DRUGS (3)
  1. FLUDARA [Suspect]
     Indication: BONE MARROW CONDITIONING REGIMEN
  2. MABCAMPATH [Suspect]
     Indication: BONE MARROW CONDITIONING REGIMEN
  3. MAXALON [Suspect]
     Route: 042

REACTIONS (5)
  - CHEST PAIN [None]
  - PALPITATIONS [None]
  - PANIC ATTACK [None]
  - RESTLESSNESS [None]
  - VOMITING [None]
